FAERS Safety Report 7279661-8 (Version None)
Quarter: 2011Q1

REPORT INFORMATION
  Report Type: 
  Country: None (occurrence: None)
  Receive Date: 20110208
  Receipt Date: 20110126
  Transmission Date: 20110831
  Serious: Yes (Other)
  Sender: FDA-Public Use
  Company Number: US-CELGENEUS-163-21880-10101972

PATIENT
  Sex: Female
  Weight: 56.296 kg

DRUGS (7)
  1. REVLIMID [Suspect]
     Indication: MULTIPLE MYELOMA
     Route: 048
     Dates: start: 20090501, end: 20101101
  2. ASPIRIN [Concomitant]
     Route: 065
  3. OXYCONTIN [Concomitant]
     Indication: PAIN
     Route: 065
  4. ZOMETA [Concomitant]
     Route: 065
  5. EPIDURAL STEROIDS [Concomitant]
     Indication: PAIN
     Route: 065
  6. DILAUDID [Concomitant]
     Indication: PAIN
     Route: 065
  7. DEXAMETHASONE [Suspect]
     Indication: MULTIPLE MYELOMA
     Route: 065
     Dates: start: 20090501, end: 20101101

REACTIONS (2)
  - IMPAIRED GASTRIC EMPTYING [None]
  - FATIGUE [None]
